FAERS Safety Report 17014799 (Version 4)
Quarter: 2019Q4

REPORT INFORMATION
  Report Type: Report from Study
  Country: ZA (occurrence: ZA)
  Receive Date: 20191111
  Receipt Date: 20191218
  Transmission Date: 20200122
  Serious: Yes (Congenital Anomaly)
  Sender: FDA-Public Use
  Company Number: ZA-VIIV HEALTHCARE LIMITED-ZA2019GSK202456

PATIENT
  Sex: Female
  Weight: 3.2 kg

DRUGS (2)
  1. DOLUTEGRAVIR [Suspect]
     Active Substance: DOLUTEGRAVIR
     Indication: HIV INFECTION
     Dosage: 50 MG, QD
     Route: 064
     Dates: start: 20180606
  2. FTC/TDF [Concomitant]
     Active Substance: EMTRICITABINE\TENOFOVIR DISOPROXIL FUMARATE
     Indication: HIV INFECTION
     Dosage: 1 DF, QD (200/300 MG)
     Route: 064
     Dates: start: 20180606

REACTIONS (1)
  - Birth mark [Not Recovered/Not Resolved]

NARRATIVE: CASE EVENT DATE: 20180614
